FAERS Safety Report 8119161-6 (Version None)
Quarter: 2012Q1

REPORT INFORMATION
  Report Type: 
  Country: None (occurrence: None)
  Receive Date: 20120207
  Receipt Date: 20120207
  Transmission Date: 20120608
  Serious: Yes (Hospitalization, Other)
  Sender: FDA-Public Use
  Company Number: None

PATIENT
  Age: 42 Year
  Sex: Female

DRUGS (2)
  1. LOESTRIN 24 FE [Suspect]
     Indication: CONTRACEPTION
     Route: 048
     Dates: start: 20100415, end: 20100625
  2. LOESTRIN 24 FE [Suspect]
     Indication: FIBROSIS
     Route: 048
     Dates: start: 20100415, end: 20100625

REACTIONS (2)
  - PULMONARY EMBOLISM [None]
  - HYPERTENSION [None]
